FAERS Safety Report 4635016-3 (Version None)
Quarter: 2005Q2

REPORT INFORMATION
  Report Type: 
  Country: None (occurrence: None)
  Receive Date: 20050411
  Receipt Date: 20050328
  Transmission Date: 20051028
  Serious: Yes (Hospitalization, Other)
  Sender: FDA-Public Use
  Company Number: 2005048983

PATIENT
  Sex: Female
  Weight: 78.0187 kg

DRUGS (4)
  1. NARDIL [Suspect]
     Indication: ILL-DEFINED DISORDER
     Dosage: 60 MG (15 MG, 4 IN 1 D), ORAL
     Route: 048
     Dates: start: 19880101
  2. DILANTIN [Suspect]
     Indication: SIMPLE PARTIAL SEIZURES
     Dosage: (100 MG), ORAL
     Route: 048
     Dates: start: 19780101
  3. LORAZEPAM [Suspect]
     Indication: ILL-DEFINED DISORDER
  4. LORAZEPAM [Concomitant]

REACTIONS (16)
  - ANEURYSM [None]
  - BLOOD PRESSURE ABNORMAL [None]
  - BURNING SENSATION [None]
  - DRUG INEFFECTIVE [None]
  - DRY MOUTH [None]
  - FEELING ABNORMAL [None]
  - FEELING HOT [None]
  - FORMICATION [None]
  - GRAND MAL CONVULSION [None]
  - PANIC ATTACK [None]
  - PETIT MAL EPILEPSY [None]
  - PHARMACEUTICAL PRODUCT COMPLAINT [None]
  - PRURITUS GENERALISED [None]
  - RASH GENERALISED [None]
  - RASH PRURITIC [None]
  - REACTION TO MEDICAL AGENT PRESERVATIVES [None]
